FAERS Safety Report 13192238 (Version 1)
Quarter: 2017Q1

REPORT INFORMATION
  Report Type: Report from Study
  Country: US (occurrence: US)
  Receive Date: 20170207
  Receipt Date: 20170207
  Transmission Date: 20170428
  Serious: Yes (Hospitalization)
  Sender: FDA-Public Use
  Company Number: PHEH2017US003183

PATIENT
  Age: 57 Year
  Sex: Male

DRUGS (2)
  1. GILENYA [Suspect]
     Active Substance: FINGOLIMOD HYDROCHLORIDE
     Indication: MULTIPLE SCLEROSIS
     Dosage: UNK
     Route: 048
     Dates: start: 20150427
  2. VITAMIN D3 [Concomitant]
     Active Substance: CHOLECALCIFEROL
     Indication: PRODUCT USED FOR UNKNOWN INDICATION
     Route: 065

REACTIONS (14)
  - Eosinophil count increased [Unknown]
  - Carbon dioxide increased [Unknown]
  - Confusional state [Unknown]
  - Red blood cell count increased [Unknown]
  - Blood urea increased [Unknown]
  - Pathogen resistance [Recovered/Resolved]
  - Red cell distribution width increased [Unknown]
  - Blood glucose increased [Unknown]
  - Neutrophil count increased [Unknown]
  - Escherichia urinary tract infection [Recovered/Resolved]
  - Blood albumin decreased [Unknown]
  - Lymphocyte count decreased [Unknown]
  - Calculus bladder [Unknown]
  - Renal cyst [Unknown]

NARRATIVE: CASE EVENT DATE: 20170124
